FAERS Safety Report 7705723-4 (Version None)
Quarter: 2011Q3

REPORT INFORMATION
  Report Type: 
  Country: None (occurrence: None)
  Receive Date: 20110824
  Receipt Date: 20110816
  Transmission Date: 20111222
  Serious: Yes (Other)
  Sender: FDA-Public Use
  Company Number: NO-BAYER-2011-073638

PATIENT
  Age: 40 Year
  Sex: Female

DRUGS (2)
  1. MIRENA [Suspect]
     Indication: CONTRACEPTION
     Dosage: UNK
     Route: 015
     Dates: start: 20110815, end: 20110815
  2. MIRENA [Suspect]
     Dosage: UNK
     Route: 015
     Dates: end: 20110815

REACTIONS (2)
  - DEVICE DIFFICULT TO USE [None]
  - POST PROCEDURAL HAEMORRHAGE [None]
